FAERS Safety Report 5802128-8 (Version None)
Quarter: 2008Q3

REPORT INFORMATION
  Report Type: 
  Country: None (occurrence: None)
  Receive Date: 20080707
  Receipt Date: 20080627
  Transmission Date: 20090109
  Serious: Yes (Hospitalization, Other)
  Sender: FDA-Public Use
  Company Number: JP-PFIZER INC-2007052565

PATIENT
  Sex: Male
  Weight: 34.5 kg

DRUGS (15)
  1. ZYVOX [Suspect]
     Indication: STAPHYLOCOCCAL INFECTION
     Route: 042
     Dates: start: 20070304, end: 20070518
  2. OMEPRAL [Concomitant]
     Indication: GASTRIC ULCER
     Route: 042
     Dates: start: 20070417, end: 20070424
  3. CIPROFLOXACIN HCL [Concomitant]
     Indication: INFECTION
     Route: 042
     Dates: start: 20070418, end: 20070423
  4. PRIMPERAN TAB [Concomitant]
     Route: 030
  5. PANTOSIN [Concomitant]
     Dates: start: 20070428, end: 20070514
  6. VANCOMYCIN [Concomitant]
     Indication: STAPHYLOCOCCAL INFECTION
     Route: 042
  7. PRODIF [Concomitant]
     Indication: FUNGAL INFECTION
     Route: 042
     Dates: start: 20070501, end: 20070619
  8. MEROPEN [Concomitant]
     Indication: PYREXIA
     Route: 042
  9. MICAFUNGIN [Concomitant]
     Indication: PYREXIA
     Route: 042
  10. PROPOFOL [Concomitant]
     Route: 042
  11. FIRSTCIN [Concomitant]
     Route: 042
  12. FINIBAX [Concomitant]
     Route: 042
  13. PIPERACILLIN AND TAZOBACTAM [Concomitant]
     Route: 042
  14. IMMUNOGLOBULINS [Concomitant]
  15. ANTITHROMBIN III [Concomitant]
     Route: 042

REACTIONS (6)
  - DEPRESSED LEVEL OF CONSCIOUSNESS [None]
  - HYPERLACTACIDAEMIA [None]
  - HYPOPHOSPHATAEMIA [None]
  - METABOLIC ACIDOSIS [None]
  - PANCYTOPENIA [None]
  - SHOCK [None]
